FAERS Safety Report 6194487-4 (Version None)
Quarter: 2009Q2

REPORT INFORMATION
  Report Type: 
  Country: None (occurrence: None)
  Receive Date: 20090519
  Receipt Date: 20090514
  Transmission Date: 20091009
  Serious: Yes (Life-Threatening, Hospitalization)
  Sender: FDA-Public Use
  Company Number: JP-JNJFOC-20090502650

PATIENT
  Sex: Male

DRUGS (10)
  1. FENTANYL [Suspect]
     Route: 062
  2. FENTANYL [Suspect]
     Indication: PAIN
     Route: 062
  3. FENTANYL [Suspect]
     Route: 062
  4. MAGNESIUM OXIDE [Concomitant]
     Indication: CONSTIPATION
     Route: 048
  5. PURSENNID [Concomitant]
     Indication: CONSTIPATION
     Route: 048
  6. SENNOSIDE (UNSPECIFIED) [Concomitant]
     Indication: CONSTIPATION
     Route: 048
  7. RIVOTRIL [Concomitant]
     Indication: PAIN
     Route: 048
  8. BENZALIN [Concomitant]
     Indication: PAIN
     Route: 048
  9. GABAPEN [Concomitant]
     Indication: PAIN
     Route: 048
  10. TRYPTANOL [Concomitant]
     Indication: PAIN
     Route: 048

REACTIONS (2)
  - MELAENA [None]
  - PANCREATIC CARCINOMA [None]
